FAERS Safety Report 22219162 (Version 1)
Quarter: 2023Q2

REPORT INFORMATION
  Report Type: Spontaneous
  Country: CN (occurrence: CN)
  Receive Date: 20230417
  Receipt Date: 20230417
  Transmission Date: 20230721
  Serious: Yes (Other)
  Sender: FDA-Public Use
  Company Number: CN-PHARMAAND-2023PHR00035

PATIENT
  Age: 64 Year
  Sex: Female

DRUGS (1)
  1. PEGASYS [Suspect]
     Active Substance: PEGINTERFERON ALFA-2A
     Indication: Product used for unknown indication
     Dosage: 180 INTERNATIONAL UNIT EVERY 1 WEEK(S) FOR AFTER LEFT RADICAL NEPHRECTOMY
     Route: 030
     Dates: start: 20230110, end: 20230131

REACTIONS (2)
  - Liver injury [Unknown]
  - Off label use [Unknown]

NARRATIVE: CASE EVENT DATE: 20230124
